FAERS Safety Report 25448202 (Version 1)
Quarter: 2025Q2

REPORT INFORMATION
  Report Type: Spontaneous
  Country: US (occurrence: US)
  Receive Date: 20250617
  Receipt Date: 20250617
  Transmission Date: 20250717
  Serious: Yes (Hospitalization, Other)
  Sender: ABBVIE
  Company Number: US-ABBVIE-6327138

PATIENT
  Age: 55 Year
  Sex: Female
  Weight: 87.089 kg

DRUGS (2)
  1. SKYRIZI [Suspect]
     Active Substance: RISANKIZUMAB-RZAA
     Indication: Psoriasis
     Route: 058
     Dates: start: 20250324, end: 20250324
  2. OLMESARTAN [Concomitant]
     Active Substance: OLMESARTAN
     Indication: Hypertension

REACTIONS (2)
  - Lacunar infarction [Recovering/Resolving]
  - Lacunar stroke [Recovering/Resolving]

NARRATIVE: CASE EVENT DATE: 20250606
